FAERS Safety Report 24701616 (Version 1)
Quarter: 2024Q4

REPORT INFORMATION
  Report Type: Spontaneous
  Country: US (occurrence: None)
  Receive Date: 20241205
  Receipt Date: 20241205
  Transmission Date: 20250115
  Serious: Yes (Other)
  Sender: Public
  Company Number: None

PATIENT
  Sex: Female

DRUGS (11)
  1. ENBREL [Suspect]
     Active Substance: ETANERCEPT
     Indication: Rheumatoid arthritis
     Dosage: FREQUENCY : WEEKLY;?
     Route: 058
     Dates: start: 20241022
  2. CYCLOSPORINE EMU 0.05% OP [Concomitant]
  3. FAMOTIDINE TAB 40MG [Concomitant]
  4. FARXIGA [Concomitant]
     Active Substance: DAPAGLIFLOZIN PROPANEDIOL
  5. FOLIC ACID TAB 1MG [Concomitant]
  6. HYDROXYCHLOROQUINE [Concomitant]
     Active Substance: HYDROXYCHLOROQUINE
  7. KP VITAMIN D [Concomitant]
  8. LISINOPRIL [Concomitant]
     Active Substance: LISINOPRIL
  9. METHOTREXATE [Concomitant]
     Active Substance: METHOTREXATE
  10. METHYLPRED TAB4MG [Concomitant]
  11. NALOXONE HCL SPR 4MG [Concomitant]

REACTIONS (5)
  - Pain [None]
  - Fatigue [None]
  - Headache [None]
  - Rash [None]
  - Skin irritation [None]
